FAERS Safety Report 5391231-5 (Version None)
Quarter: 2007Q3

REPORT INFORMATION
  Report Type: 
  Country: None (occurrence: None)
  Receive Date: 20070717
  Receipt Date: 20070706
  Transmission Date: 20080115
  Serious: Yes (Hospitalization)
  Sender: FDA-Public Use
  Company Number: 2007325350

PATIENT
  Age: 57 Year
  Sex: Male
  Weight: 95.3 kg

DRUGS (1)
  1. ROGAINE [Suspect]
     Indication: ALOPECIA
     Dosage: UNSPECIFIED, TWICE A DAY (2 IN 1 D),TOPICAL
     Route: 061
     Dates: start: 20070510, end: 20070622

REACTIONS (4)
  - DIZZINESS [None]
  - FATIGUE [None]
  - HEART RATE INCREASED [None]
  - HYPERHIDROSIS [None]
